FAERS Safety Report 8972414 (Version 3)
Quarter: 2013Q1

REPORT INFORMATION
  Report Type: Spontaneous
  Country: GB (occurrence: GB)
  Receive Date: 20121218
  Receipt Date: 20130122
  Transmission Date: 20140127
  Serious: Yes (Life-Threatening)
  Sender: FDA-Public Use
  Company Number: GB-TEVA-375737ISR

PATIENT
  Age: 34 Year
  Sex: Male

DRUGS (3)
  1. DICLOFENAC [Suspect]
     Indication: BACK PAIN
     Dosage: DOSAGE FORM: UNKNOWN
     Route: 048
  2. IBUPROFEN [Suspect]
     Indication: BACK PAIN
     Dosage: DOSAGE FORM: UNSPECIFIED
     Route: 048
  3. PARACETAMOL [Concomitant]
     Indication: BACK PAIN
     Dosage: DOSAGE FORM: UNSPECIFIED
     Route: 048

REACTIONS (3)
  - Agranulocytosis [Recovered/Resolved]
  - Sepsis [Recovered/Resolved]
  - Necrosis [Unknown]
